FAERS Safety Report 9704333 (Version 2)
Quarter: 2013Q4

REPORT INFORMATION
  Report Type: Spontaneous
  Country: US (occurrence: US)
  Receive Date: 20131122
  Receipt Date: 20131226
  Transmission Date: 20140711
  Serious: Yes (Death)
  Sender: FDA-Public Use
  Company Number: US-CELGENEUS-163-21660-13113539

PATIENT
  Sex: Female

DRUGS (2)
  1. ABRAXANE [Suspect]
     Indication: PANCREATIC CARCINOMA METASTATIC
     Dosage: 200 MILLIGRAM
     Route: 065
     Dates: start: 20130218, end: 20130826
  2. GEMZAR [Concomitant]
     Indication: PANCREATIC CARCINOMA
     Dosage: 1462 MILLIGRAM
     Route: 041
     Dates: start: 20130218, end: 20130826

REACTIONS (1)
  - Pancreatic carcinoma [Fatal]
